FAERS Safety Report 6397793-3 (Version None)
Quarter: 2009Q4

REPORT INFORMATION
  Report Type: 
  Country: None (occurrence: None)
  Receive Date: 20091007
  Receipt Date: 20090925
  Transmission Date: 20100525
  Serious: Yes (Other)
  Sender: FDA-Public Use
  Company Number: 2009AP004011

PATIENT
  Age: 82 Year
  Sex: Male

DRUGS (2)
  1. OMEPRAZOLE [Suspect]
     Dosage: 40 MG;QD
  2. ESOMEPRAZOLE MAGNESIUM [Suspect]

REACTIONS (3)
  - COLITIS COLLAGENOUS [None]
  - COLITIS MICROSCOPIC [None]
  - DIVERTICULUM [None]
